FAERS Safety Report 25423163 (Version 7)
Quarter: 2025Q3

REPORT INFORMATION
  Report Type: Spontaneous
  Country: CO (occurrence: CO)
  Receive Date: 20250611
  Receipt Date: 20250923
  Transmission Date: 20251021
  Serious: No
  Sender: PFIZER
  Company Number: CO-PFIZER INC-202500116001

PATIENT
  Age: 14 Year
  Sex: Male
  Weight: 39 kg

DRUGS (1)
  1. GENOTROPIN [Suspect]
     Active Substance: SOMATROPIN
     Indication: Short stature
     Dosage: 1.4 MG, DAILY
     Route: 058
     Dates: start: 202407, end: 20250603

REACTIONS (6)
  - Device mechanical issue [Recovered/Resolved]
  - Device breakage [Recovered/Resolved]
  - Device issue [Recovered/Resolved]
  - Device use issue [Recovered/Resolved]
  - Drug dose omission by device [Unknown]
  - Off label use [Unknown]

NARRATIVE: CASE EVENT DATE: 20240701
